FAERS Safety Report 20372625 (Version 2)
Quarter: 2025Q2

REPORT INFORMATION
  Report Type: Spontaneous
  Country: CA (occurrence: CA)
  Receive Date: 20220125
  Receipt Date: 20250527
  Transmission Date: 20250716
  Serious: Yes (Life-Threatening, Hospitalization, Disabling, Other)
  Sender: BRISTOL-MYERS SQUIBB COMPANY
  Company Number: CA-BRISTOL-MYERS SQUIBB COMPANY-BMS-2022-007564

PATIENT
  Age: 44 Year
  Sex: Female
  Weight: 68 kg

DRUGS (599)
  1. ORENCIA [Suspect]
     Active Substance: ABATACEPT
     Indication: Rheumatoid arthritis
  2. ORENCIA [Suspect]
     Active Substance: ABATACEPT
  3. ORENCIA [Suspect]
     Active Substance: ABATACEPT
     Route: 015
  4. ORENCIA [Suspect]
     Active Substance: ABATACEPT
     Route: 017
  5. ORENCIA [Suspect]
     Active Substance: ABATACEPT
  6. ORENCIA [Suspect]
     Active Substance: ABATACEPT
     Indication: Rheumatoid arthritis
     Route: 058
  7. ORENCIA [Suspect]
     Active Substance: ABATACEPT
  8. ORENCIA [Suspect]
     Active Substance: ABATACEPT
     Dosage: 125 MILLIGRAM
     Route: 042
  9. ORENCIA [Suspect]
     Active Substance: ABATACEPT
     Dosage: 125 MILLIGRAM
     Route: 058
  10. ORENCIA [Suspect]
     Active Substance: ABATACEPT
     Dosage: 125 MILLIGRAM
     Route: 058
  11. ORENCIA [Suspect]
     Active Substance: ABATACEPT
     Dosage: 125 MILLIGRAM
     Route: 058
  12. ORENCIA [Suspect]
     Active Substance: ABATACEPT
     Dosage: 125 MILLIGRAM
     Route: 058
  13. ORENCIA [Suspect]
     Active Substance: ABATACEPT
  14. ORENCIA [Suspect]
     Active Substance: ABATACEPT
     Dosage: 125 MILLIGRAM
     Route: 058
  15. ORENCIA [Suspect]
     Active Substance: ABATACEPT
     Route: 015
  16. ORENCIA [Suspect]
     Active Substance: ABATACEPT
     Dosage: 125 MILLIGRAM
     Route: 058
  17. ORENCIA [Suspect]
     Active Substance: ABATACEPT
     Route: 058
  18. ORENCIA [Suspect]
     Active Substance: ABATACEPT
     Dosage: 125 MILLIGRAM
     Route: 058
  19. ORENCIA [Suspect]
     Active Substance: ABATACEPT
     Route: 058
  20. ORENCIA [Suspect]
     Active Substance: ABATACEPT
     Dosage: 125 MILLIGRAM
     Route: 058
  21. ORENCIA [Suspect]
     Active Substance: ABATACEPT
     Dosage: 125 MILLIGRAM
     Route: 058
  22. ORENCIA [Suspect]
     Active Substance: ABATACEPT
     Dosage: 125 MILLIGRAM
     Route: 058
  23. ORENCIA [Suspect]
     Active Substance: ABATACEPT
     Indication: Rheumatoid arthritis
     Route: 042
  24. ORENCIA [Suspect]
     Active Substance: ABATACEPT
     Indication: Psoriatic arthropathy
     Route: 042
  25. ORENCIA [Suspect]
     Active Substance: ABATACEPT
     Route: 042
  26. ORENCIA [Suspect]
     Active Substance: ABATACEPT
     Route: 042
  27. ORENCIA [Suspect]
     Active Substance: ABATACEPT
     Route: 042
  28. ORENCIA [Suspect]
     Active Substance: ABATACEPT
     Route: 041
  29. ORENCIA [Suspect]
     Active Substance: ABATACEPT
     Route: 042
  30. ORENCIA [Suspect]
     Active Substance: ABATACEPT
     Route: 042
  31. TRIAMCINOLONE ACETONIDE [Suspect]
     Active Substance: TRIAMCINOLONE ACETONIDE
     Indication: Rheumatoid arthritis
     Route: 014
  32. GOLIMUMAB [Concomitant]
     Active Substance: GOLIMUMAB
     Indication: Rheumatoid arthritis
  33. GOLIMUMAB [Concomitant]
     Active Substance: GOLIMUMAB
     Route: 058
  34. CERTOLIZUMAB PEGOL [Concomitant]
     Active Substance: CERTOLIZUMAB PEGOL
     Indication: Product used for unknown indication
  35. TRAMADOL HYDROCHLORIDE [Concomitant]
     Active Substance: TRAMADOL HYDROCHLORIDE
     Indication: Product used for unknown indication
  36. FLUMETHASONE PIVALATE [Concomitant]
     Active Substance: FLUMETHASONE PIVALATE
     Indication: Rheumatoid arthritis
     Route: 058
  37. DICLOFENAC POTASSIUM [Concomitant]
     Active Substance: DICLOFENAC POTASSIUM
     Indication: Product used for unknown indication
     Route: 048
  38. DICLOFENAC POTASSIUM [Concomitant]
     Active Substance: DICLOFENAC POTASSIUM
     Route: 048
  39. DICLOFENAC POTASSIUM [Concomitant]
     Active Substance: DICLOFENAC POTASSIUM
     Route: 047
  40. DICLOFENAC POTASSIUM [Concomitant]
     Active Substance: DICLOFENAC POTASSIUM
     Route: 058
  41. DICLOFENAC POTASSIUM [Concomitant]
     Active Substance: DICLOFENAC POTASSIUM
  42. DICLOFENAC POTASSIUM [Concomitant]
     Active Substance: DICLOFENAC POTASSIUM
     Route: 058
  43. DICLOFENAC POTASSIUM [Concomitant]
     Active Substance: DICLOFENAC POTASSIUM
     Route: 048
  44. SIMPONI [Concomitant]
     Active Substance: GOLIMUMAB
     Indication: Rheumatoid arthritis
     Route: 058
  45. SIMPONI [Concomitant]
     Active Substance: GOLIMUMAB
     Indication: Psoriatic arthropathy
     Route: 042
  46. SIMPONI [Concomitant]
     Active Substance: GOLIMUMAB
     Route: 052
  47. SIMPONI [Concomitant]
     Active Substance: GOLIMUMAB
     Route: 058
  48. SIMPONI [Concomitant]
     Active Substance: GOLIMUMAB
     Route: 058
  49. SIMPONI [Concomitant]
     Active Substance: GOLIMUMAB
     Route: 058
  50. SIMPONI [Concomitant]
     Active Substance: GOLIMUMAB
     Route: 052
  51. SIMPONI [Concomitant]
     Active Substance: GOLIMUMAB
     Route: 042
  52. SIMPONI [Concomitant]
     Active Substance: GOLIMUMAB
  53. SIMPONI [Concomitant]
     Active Substance: GOLIMUMAB
  54. PREDNISONE [Concomitant]
     Active Substance: PREDNISONE
     Indication: Rheumatoid arthritis
  55. PREDNISONE [Concomitant]
     Active Substance: PREDNISONE
     Indication: Psoriatic arthropathy
     Route: 048
  56. PREDNISONE [Concomitant]
     Active Substance: PREDNISONE
     Indication: Condition aggravated
     Route: 048
  57. PREDNISONE [Concomitant]
     Active Substance: PREDNISONE
     Indication: Systemic lupus erythematosus
     Route: 048
  58. PREDNISONE [Concomitant]
     Active Substance: PREDNISONE
     Indication: Synovitis
     Route: 048
  59. PREDNISONE [Concomitant]
     Active Substance: PREDNISONE
     Indication: Pemphigus
  60. PREDNISONE [Concomitant]
     Active Substance: PREDNISONE
     Route: 042
  61. PHTHALYLSULFATHIAZOLE [Concomitant]
     Active Substance: PHTHALYLSULFATHIAZOLE
     Indication: Rheumatoid arthritis
     Route: 048
  62. PHTHALYLSULFATHIAZOLE [Concomitant]
     Active Substance: PHTHALYLSULFATHIAZOLE
  63. PHTHALYLSULFATHIAZOLE [Concomitant]
     Active Substance: PHTHALYLSULFATHIAZOLE
     Route: 048
  64. PHTHALYLSULFATHIAZOLE [Concomitant]
     Active Substance: PHTHALYLSULFATHIAZOLE
     Route: 048
  65. PHTHALYLSULFATHIAZOLE [Concomitant]
     Active Substance: PHTHALYLSULFATHIAZOLE
     Route: 016
  66. PHTHALYLSULFATHIAZOLE [Concomitant]
     Active Substance: PHTHALYLSULFATHIAZOLE
     Route: 042
  67. METHOTREXATE [Concomitant]
     Active Substance: METHOTREXATE
     Indication: Rheumatoid arthritis
     Dosage: 25 MILLIGRAM, QWK
     Route: 058
  68. METHOTREXATE [Concomitant]
     Active Substance: METHOTREXATE
     Route: 048
  69. METHOTREXATE [Concomitant]
     Active Substance: METHOTREXATE
     Dosage: 25 MILLIGRAM, QWK
     Route: 058
  70. METHOTREXATE [Concomitant]
     Active Substance: METHOTREXATE
     Route: 048
  71. METHOTREXATE [Concomitant]
     Active Substance: METHOTREXATE
     Route: 048
  72. METHOTREXATE [Concomitant]
     Active Substance: METHOTREXATE
  73. METHOTREXATE [Concomitant]
     Active Substance: METHOTREXATE
  74. METHOTREXATE [Concomitant]
     Active Substance: METHOTREXATE
     Route: 013
  75. METHOTREXATE [Concomitant]
     Active Substance: METHOTREXATE
     Route: 048
  76. METHOTREXATE [Concomitant]
     Active Substance: METHOTREXATE
     Route: 048
  77. METHOTREXATE [Concomitant]
     Active Substance: METHOTREXATE
     Route: 048
  78. METHOTREXATE [Concomitant]
     Active Substance: METHOTREXATE
     Route: 013
  79. METHOTREXATE [Concomitant]
     Active Substance: METHOTREXATE
     Dosage: 25 MILLIGRAM, QWK
     Route: 058
  80. METHOTREXATE [Concomitant]
     Active Substance: METHOTREXATE
     Route: 048
  81. METHOTREXATE [Concomitant]
     Active Substance: METHOTREXATE
     Route: 048
  82. HYDROXYCHLOROQUINE [Concomitant]
     Active Substance: HYDROXYCHLOROQUINE
     Indication: Rheumatoid arthritis
     Dosage: 400 MILLIGRAM, QD
     Route: 048
  83. HYDROXYCHLOROQUINE [Concomitant]
     Active Substance: HYDROXYCHLOROQUINE
     Dosage: 400 MILLIGRAM, QD
  84. HYDROXYCHLOROQUINE [Concomitant]
     Active Substance: HYDROXYCHLOROQUINE
     Dosage: 400 MILLIGRAM, QD
     Route: 048
  85. HYDROXYCHLOROQUINE [Concomitant]
     Active Substance: HYDROXYCHLOROQUINE
     Dosage: 400 MILLIGRAM, QD
  86. HYDROXYCHLOROQUINE [Concomitant]
     Active Substance: HYDROXYCHLOROQUINE
     Route: 048
  87. HYDROXYCHLOROQUINE [Concomitant]
     Active Substance: HYDROXYCHLOROQUINE
  88. HYDROXYCHLOROQUINE [Concomitant]
     Active Substance: HYDROXYCHLOROQUINE
  89. HYDROXYCHLOROQUINE [Concomitant]
     Active Substance: HYDROXYCHLOROQUINE
     Route: 048
  90. HYDROXYCHLOROQUINE [Concomitant]
     Active Substance: HYDROXYCHLOROQUINE
  91. HYDROXYCHLOROQUINE [Concomitant]
     Active Substance: HYDROXYCHLOROQUINE
     Route: 005
  92. HYDROXYCHLOROQUINE [Concomitant]
     Active Substance: HYDROXYCHLOROQUINE
     Route: 048
  93. HYDROXYCHLOROQUINE [Concomitant]
     Active Substance: HYDROXYCHLOROQUINE
     Route: 048
  94. HYDROXYCHLOROQUINE [Concomitant]
     Active Substance: HYDROXYCHLOROQUINE
     Route: 048
  95. ENBREL [Concomitant]
     Active Substance: ETANERCEPT
     Indication: Rheumatoid arthritis
     Dosage: 50 MILLIGRAM, Q2WK
     Route: 058
  96. ENBREL [Concomitant]
     Active Substance: ETANERCEPT
     Indication: Psoriatic arthropathy
  97. ENBREL [Concomitant]
     Active Substance: ETANERCEPT
     Route: 058
  98. ENBREL [Concomitant]
     Active Substance: ETANERCEPT
     Route: 058
  99. ENBREL [Concomitant]
     Active Substance: ETANERCEPT
     Route: 058
  100. ENBREL [Concomitant]
     Active Substance: ETANERCEPT
     Route: 058
  101. ENBREL [Concomitant]
     Active Substance: ETANERCEPT
  102. ENBREL [Concomitant]
     Active Substance: ETANERCEPT
     Route: 058
  103. ENBREL [Concomitant]
     Active Substance: ETANERCEPT
     Route: 058
  104. ENBREL [Concomitant]
     Active Substance: ETANERCEPT
     Route: 058
  105. ENBREL [Concomitant]
     Active Substance: ETANERCEPT
     Route: 058
  106. ENBREL [Concomitant]
     Active Substance: ETANERCEPT
  107. CHLORHEXIDINE [Concomitant]
     Active Substance: CHLORHEXIDINE
     Indication: Product used for unknown indication
     Route: 002
  108. CHLORHEXIDINE [Concomitant]
     Active Substance: CHLORHEXIDINE
  109. CHLORHEXIDINE [Concomitant]
     Active Substance: CHLORHEXIDINE
     Route: 048
  110. CHLORHEXIDINE [Concomitant]
     Active Substance: CHLORHEXIDINE
     Route: 061
  111. XELJANZ [Concomitant]
     Active Substance: TOFACITINIB CITRATE
     Indication: Rheumatoid arthritis
     Dosage: 5 MILLIGRAM, 2 EVERY 1 DAY
  112. XELJANZ [Concomitant]
     Active Substance: TOFACITINIB CITRATE
     Dosage: 5 MILLIGRAM, 2 EVERY 1 DAY
  113. XELJANZ [Concomitant]
     Active Substance: TOFACITINIB CITRATE
     Route: 048
  114. XELJANZ [Concomitant]
     Active Substance: TOFACITINIB CITRATE
  115. XELJANZ [Concomitant]
     Active Substance: TOFACITINIB CITRATE
  116. XELJANZ [Concomitant]
     Active Substance: TOFACITINIB CITRATE
  117. XELJANZ [Concomitant]
     Active Substance: TOFACITINIB CITRATE
  118. XELJANZ [Concomitant]
     Active Substance: TOFACITINIB CITRATE
  119. XELJANZ [Concomitant]
     Active Substance: TOFACITINIB CITRATE
     Route: 048
  120. XELJANZ [Concomitant]
     Active Substance: TOFACITINIB CITRATE
  121. XELJANZ [Concomitant]
     Active Substance: TOFACITINIB CITRATE
  122. XELJANZ [Concomitant]
     Active Substance: TOFACITINIB CITRATE
  123. XELJANZ [Concomitant]
     Active Substance: TOFACITINIB CITRATE
     Route: 048
  124. XELJANZ [Concomitant]
     Active Substance: TOFACITINIB CITRATE
  125. XELJANZ [Concomitant]
     Active Substance: TOFACITINIB CITRATE
     Route: 048
  126. SULFASALAZINE [Concomitant]
     Active Substance: SULFASALAZINE
     Indication: Rheumatoid arthritis
     Route: 048
  127. SULFASALAZINE [Concomitant]
     Active Substance: SULFASALAZINE
     Route: 048
  128. SULFASALAZINE [Concomitant]
     Active Substance: SULFASALAZINE
     Dosage: 500 MILLIGRAM, TABLET (ENTERIC-?COATED)
     Route: 048
  129. SULFASALAZINE [Concomitant]
     Active Substance: SULFASALAZINE
     Route: 048
  130. SULFASALAZINE [Concomitant]
     Active Substance: SULFASALAZINE
     Dosage: 500 MILLIGRAM, TABLET (ENTERIC-?COATED)
     Route: 048
  131. SULFASALAZINE [Concomitant]
     Active Substance: SULFASALAZINE
     Route: 048
  132. SULFASALAZINE [Concomitant]
     Active Substance: SULFASALAZINE
     Route: 048
  133. SULFASALAZINE [Concomitant]
     Active Substance: SULFASALAZINE
     Route: 048
  134. SULFASALAZINE [Concomitant]
     Active Substance: SULFASALAZINE
     Dosage: 500 MILLIGRAM, TABLET (ENTERIC-?COATED)
  135. SULFASALAZINE [Concomitant]
     Active Substance: SULFASALAZINE
     Dosage: 500 MILLIGRAM, TABLET (ENTERIC-?COATED)
     Route: 048
  136. SULFASALAZINE [Concomitant]
     Active Substance: SULFASALAZINE
     Dosage: 500 MILLIGRAM, TABLET (ENTERIC-?COATED)
     Route: 048
  137. SULFASALAZINE [Concomitant]
     Active Substance: SULFASALAZINE
     Dosage: 500 MILLIGRAM, TABLET (ENTERIC-?COATED)
     Route: 048
  138. SULFASALAZINE [Concomitant]
     Active Substance: SULFASALAZINE
     Dosage: 500 MILLIGRAM, TABLET (ENTERIC-?COATED)
  139. SULFASALAZINE [Concomitant]
     Active Substance: SULFASALAZINE
     Route: 048
  140. SULFASALAZINE [Concomitant]
     Active Substance: SULFASALAZINE
     Route: 048
  141. SULFASALAZINE [Concomitant]
     Active Substance: SULFASALAZINE
     Route: 048
  142. SULFASALAZINE [Concomitant]
     Active Substance: SULFASALAZINE
     Route: 048
  143. SULFASALAZINE [Concomitant]
     Active Substance: SULFASALAZINE
     Route: 048
  144. SULFASALAZINE [Concomitant]
     Active Substance: SULFASALAZINE
     Route: 048
  145. SULFASALAZINE [Concomitant]
     Active Substance: SULFASALAZINE
     Route: 048
  146. SULFASALAZINE [Concomitant]
     Active Substance: SULFASALAZINE
     Route: 048
  147. SULFASALAZINE [Concomitant]
     Active Substance: SULFASALAZINE
     Route: 048
  148. SULFASALAZINE [Concomitant]
     Active Substance: SULFASALAZINE
     Route: 048
  149. SULFASALAZINE [Concomitant]
     Active Substance: SULFASALAZINE
     Route: 048
  150. SULFASALAZINE [Concomitant]
     Active Substance: SULFASALAZINE
     Route: 048
  151. SULFASALAZINE [Concomitant]
     Active Substance: SULFASALAZINE
     Route: 058
  152. SULFASALAZINE [Concomitant]
     Active Substance: SULFASALAZINE
     Route: 048
  153. SULFASALAZINE [Concomitant]
     Active Substance: SULFASALAZINE
  154. STELARA [Concomitant]
     Active Substance: USTEKINUMAB
     Indication: Psoriatic arthropathy
     Route: 058
  155. STELARA [Concomitant]
     Active Substance: USTEKINUMAB
     Route: 042
  156. STELARA [Concomitant]
     Active Substance: USTEKINUMAB
     Route: 042
  157. STELARA [Concomitant]
     Active Substance: USTEKINUMAB
     Route: 058
  158. STELARA [Concomitant]
     Active Substance: USTEKINUMAB
     Route: 042
  159. SULFAMETHOXAZOLE [Concomitant]
     Active Substance: SULFAMETHOXAZOLE
     Indication: Product used for unknown indication
  160. SIMPONI [Concomitant]
     Active Substance: GOLIMUMAB
     Indication: Rheumatoid arthritis
     Route: 058
  161. RITUXIMAB [Concomitant]
     Active Substance: RITUXIMAB
     Indication: Rheumatoid arthritis
     Route: 042
  162. RITUXIMAB [Concomitant]
     Active Substance: RITUXIMAB
     Route: 058
  163. RITUXIMAB [Concomitant]
     Active Substance: RITUXIMAB
     Route: 041
  164. RITUXIMAB [Concomitant]
     Active Substance: RITUXIMAB
     Route: 042
  165. RITUXIMAB [Concomitant]
     Active Substance: RITUXIMAB
  166. RITUXIMAB [Concomitant]
     Active Substance: RITUXIMAB
     Route: 058
  167. RITUXIMAB [Concomitant]
     Active Substance: RITUXIMAB
  168. RITUXIMAB [Concomitant]
     Active Substance: RITUXIMAB
     Route: 016
  169. REMICADE [Concomitant]
     Active Substance: INFLIXIMAB
     Indication: Rheumatoid arthritis
     Route: 042
  170. REMICADE [Concomitant]
     Active Substance: INFLIXIMAB
     Route: 042
  171. REMICADE [Concomitant]
     Active Substance: INFLIXIMAB
  172. CETIRIZINE HYDROCHLORIDE\PSEUDOEPHEDRINE HYDROCHLORIDE [Concomitant]
     Active Substance: CETIRIZINE HYDROCHLORIDE\PSEUDOEPHEDRINE HYDROCHLORIDE
     Indication: Rheumatoid arthritis
  173. CETIRIZINE HYDROCHLORIDE\PSEUDOEPHEDRINE HYDROCHLORIDE [Concomitant]
     Active Substance: CETIRIZINE HYDROCHLORIDE\PSEUDOEPHEDRINE HYDROCHLORIDE
     Route: 048
  174. CETIRIZINE HYDROCHLORIDE\PSEUDOEPHEDRINE HYDROCHLORIDE [Concomitant]
     Active Substance: CETIRIZINE HYDROCHLORIDE\PSEUDOEPHEDRINE HYDROCHLORIDE
     Route: 048
  175. PSEUDOEPHEDRINE HYDROCHLORIDE [Concomitant]
     Active Substance: PSEUDOEPHEDRINE HYDROCHLORIDE
     Indication: Rheumatoid arthritis
  176. PSEUDOEPHEDRINE HYDROCHLORIDE [Concomitant]
     Active Substance: PSEUDOEPHEDRINE HYDROCHLORIDE
  177. PSEUDOEPHEDRINE HYDROCHLORIDE [Concomitant]
     Active Substance: PSEUDOEPHEDRINE HYDROCHLORIDE
  178. PSEUDOEPHEDRINE HYDROCHLORIDE [Concomitant]
     Active Substance: PSEUDOEPHEDRINE HYDROCHLORIDE
  179. PREDNISONE [Concomitant]
     Active Substance: PREDNISONE
     Indication: Rheumatoid arthritis
     Route: 048
  180. HYDROXYCHLOROQUINE DIPHOSPHATE [Concomitant]
     Active Substance: HYDROXYCHLOROQUINE DIPHOSPHATE
     Indication: Rheumatoid arthritis
  181. HYDROXYCHLOROQUINE DIPHOSPHATE [Concomitant]
     Active Substance: HYDROXYCHLOROQUINE DIPHOSPHATE
  182. PHTHALYLSULFATHIAZOLE [Concomitant]
     Active Substance: PHTHALYLSULFATHIAZOLE
     Indication: Rheumatoid arthritis
  183. PHTHALYLSULFATHIAZOLE [Concomitant]
     Active Substance: PHTHALYLSULFATHIAZOLE
     Route: 048
  184. PERIOGARD [Concomitant]
     Active Substance: CHLORHEXIDINE GLUCONATE
     Indication: Product used for unknown indication
     Route: 002
  185. PERIOGARD [Concomitant]
     Active Substance: CHLORHEXIDINE GLUCONATE
     Route: 016
  186. PERIOGARD [Concomitant]
     Active Substance: CHLORHEXIDINE GLUCONATE
     Route: 016
  187. PERIOGARD [Concomitant]
     Active Substance: CHLORHEXIDINE GLUCONATE
  188. PERIOGARD [Concomitant]
     Active Substance: CHLORHEXIDINE GLUCONATE
     Route: 048
  189. PERIOGARD [Concomitant]
     Active Substance: CHLORHEXIDINE GLUCONATE
  190. PERIOGARD [Concomitant]
     Active Substance: CHLORHEXIDINE GLUCONATE
     Route: 048
  191. OXYCODONE TEREPHTHALATE [Concomitant]
     Active Substance: OXYCODONE TEREPHTHALATE
     Indication: Product used for unknown indication
     Route: 016
  192. OXYCODONE HYDROCHLORIDE [Concomitant]
     Active Substance: OXYCODONE HYDROCHLORIDE
     Indication: Product used for unknown indication
  193. OXYCODONE HYDROCHLORIDE [Concomitant]
     Active Substance: OXYCODONE HYDROCHLORIDE
     Route: 016
  194. OXYCODONE [Concomitant]
     Active Substance: OXYCODONE
     Indication: Product used for unknown indication
  195. OXYCODONE [Concomitant]
     Active Substance: OXYCODONE
     Route: 042
  196. METHOTREXATE [Concomitant]
     Active Substance: METHOTREXATE
     Indication: Rheumatoid arthritis
     Route: 048
  197. LEFLUNOMIDE [Concomitant]
     Active Substance: LEFLUNOMIDE
     Indication: Rheumatoid arthritis
     Route: 048
  198. LEFLUNOMIDE [Concomitant]
     Active Substance: LEFLUNOMIDE
     Route: 048
  199. LEFLUNOMIDE [Concomitant]
     Active Substance: LEFLUNOMIDE
     Route: 048
  200. LEFLUNOMIDE [Concomitant]
     Active Substance: LEFLUNOMIDE
  201. KEVZARA [Concomitant]
     Active Substance: SARILUMAB
     Indication: Rheumatoid arthritis
  202. HYDROXYCHLOROQUINE SULFATE [Concomitant]
     Active Substance: HYDROXYCHLOROQUINE SULFATE
     Indication: Rheumatoid arthritis
     Route: 048
  203. HYDROXYCHLOROQUINE SULFATE [Concomitant]
     Active Substance: HYDROXYCHLOROQUINE SULFATE
     Indication: Systemic lupus erythematosus
  204. HYDROXYCHLOROQUINE SULFATE [Concomitant]
     Active Substance: HYDROXYCHLOROQUINE SULFATE
     Route: 048
  205. HYDROXYCHLOROQUINE SULFATE [Concomitant]
     Active Substance: HYDROXYCHLOROQUINE SULFATE
     Route: 048
  206. HYDROXYCHLOROQUINE SULFATE [Concomitant]
     Active Substance: HYDROXYCHLOROQUINE SULFATE
     Route: 058
  207. HYDROXYCHLOROQUINE SULFATE [Concomitant]
     Active Substance: HYDROXYCHLOROQUINE SULFATE
     Route: 048
  208. HYDROXYCHLOROQUINE SULFATE [Concomitant]
     Active Substance: HYDROXYCHLOROQUINE SULFATE
     Route: 048
  209. HYDROXYCHLOROQUINE SULFATE [Concomitant]
     Active Substance: HYDROXYCHLOROQUINE SULFATE
     Route: 048
  210. HYDROXYCHLOROQUINE SULFATE [Concomitant]
     Active Substance: HYDROXYCHLOROQUINE SULFATE
     Route: 048
  211. HYDROXYCHLOROQUINE SULFATE [Concomitant]
     Active Substance: HYDROXYCHLOROQUINE SULFATE
  212. HYDROXYCHLOROQUINE SULFATE [Concomitant]
     Active Substance: HYDROXYCHLOROQUINE SULFATE
  213. HYDROXYCHLOROQUINE SULFATE [Concomitant]
     Active Substance: HYDROXYCHLOROQUINE SULFATE
     Route: 048
  214. HYDROXYCHLOROQUINE SULFATE [Concomitant]
     Active Substance: HYDROXYCHLOROQUINE SULFATE
     Route: 058
  215. HYDROXYCHLOROQUINE SULFATE [Concomitant]
     Active Substance: HYDROXYCHLOROQUINE SULFATE
     Route: 048
  216. HYDROXYCHLOROQUINE SULFATE [Concomitant]
     Active Substance: HYDROXYCHLOROQUINE SULFATE
     Route: 058
  217. HYDROXYCHLOROQUINE SULFATE [Concomitant]
     Active Substance: HYDROXYCHLOROQUINE SULFATE
     Route: 058
  218. HYDROXYCHLOROQUINE SULFATE [Concomitant]
     Active Substance: HYDROXYCHLOROQUINE SULFATE
     Route: 016
  219. HYDROXYCHLOROQUINE SULFATE [Concomitant]
     Active Substance: HYDROXYCHLOROQUINE SULFATE
     Route: 048
  220. HYDROXYCHLOROQUINE SULFATE [Concomitant]
     Active Substance: HYDROXYCHLOROQUINE SULFATE
     Route: 066
  221. HYDROXYCHLOROQUINE SULFATE [Concomitant]
     Active Substance: HYDROXYCHLOROQUINE SULFATE
  222. HYDROXYCHLOROQUINE SULFATE [Concomitant]
     Active Substance: HYDROXYCHLOROQUINE SULFATE
  223. HYDROXYCHLOROQUINE SULFATE [Concomitant]
     Active Substance: HYDROXYCHLOROQUINE SULFATE
     Route: 048
  224. HYDROXYCHLOROQUINE SULFATE [Concomitant]
     Active Substance: HYDROXYCHLOROQUINE SULFATE
  225. HYDROXYCHLOROQUINE SULFATE [Concomitant]
     Active Substance: HYDROXYCHLOROQUINE SULFATE
     Route: 048
  226. HYDROXYCHLOROQUINE SULFATE [Concomitant]
     Active Substance: HYDROXYCHLOROQUINE SULFATE
  227. HYDROXYCHLOROQUINE SULFATE [Concomitant]
     Active Substance: HYDROXYCHLOROQUINE SULFATE
     Route: 058
  228. HYDROXYCHLOROQUINE SULFATE [Concomitant]
     Active Substance: HYDROXYCHLOROQUINE SULFATE
  229. HYDROXYCHLOROQUINE [Concomitant]
     Active Substance: HYDROXYCHLOROQUINE
     Indication: Rheumatoid arthritis
  230. HYDROCORTISONE ACETATE [Concomitant]
     Active Substance: HYDROCORTISONE ACETATE
     Indication: Product used for unknown indication
  231. HUMIRA [Concomitant]
     Active Substance: ADALIMUMAB
     Indication: Rheumatoid arthritis
     Route: 058
  232. HUMIRA [Concomitant]
     Active Substance: ADALIMUMAB
     Indication: Psoriatic arthropathy
     Route: 058
  233. HUMIRA [Concomitant]
     Active Substance: ADALIMUMAB
     Route: 058
  234. HUMIRA [Concomitant]
     Active Substance: ADALIMUMAB
     Route: 058
  235. HUMIRA [Concomitant]
     Active Substance: ADALIMUMAB
     Route: 058
  236. HUMIRA [Concomitant]
     Active Substance: ADALIMUMAB
     Route: 058
  237. HUMIRA [Concomitant]
     Active Substance: ADALIMUMAB
     Route: 058
  238. HUMIRA [Concomitant]
     Active Substance: ADALIMUMAB
     Route: 058
  239. HUMIRA [Concomitant]
     Active Substance: ADALIMUMAB
     Route: 057
  240. HUMIRA [Concomitant]
     Active Substance: ADALIMUMAB
  241. HUMIRA [Concomitant]
     Active Substance: ADALIMUMAB
  242. FOSAMAX [Concomitant]
     Active Substance: ALENDRONATE SODIUM
     Indication: Rheumatoid arthritis
  243. FOSAMAX [Concomitant]
     Active Substance: ALENDRONATE SODIUM
     Route: 048
  244. FOSAMAX [Concomitant]
     Active Substance: ALENDRONATE SODIUM
     Route: 058
  245. FOLIC ACID [Concomitant]
     Active Substance: FOLIC ACID
     Indication: Rheumatoid arthritis
  246. FOLIC ACID [Concomitant]
     Active Substance: FOLIC ACID
     Route: 058
  247. FOLIC ACID [Concomitant]
     Active Substance: FOLIC ACID
  248. FOLIC ACID [Concomitant]
     Active Substance: FOLIC ACID
     Route: 048
  249. FOLIC ACID [Concomitant]
     Active Substance: FOLIC ACID
     Route: 048
  250. FOLIC ACID [Concomitant]
     Active Substance: FOLIC ACID
     Route: 048
  251. FOLIC ACID [Concomitant]
     Active Substance: FOLIC ACID
  252. FOLIC ACID [Concomitant]
     Active Substance: FOLIC ACID
  253. FOLIC ACID [Concomitant]
     Active Substance: FOLIC ACID
  254. FOLIC ACID [Concomitant]
     Active Substance: FOLIC ACID
  255. FOLIC ACID [Concomitant]
     Active Substance: FOLIC ACID
  256. FOLIC ACID [Concomitant]
     Active Substance: FOLIC ACID
  257. FOLIC ACID [Concomitant]
     Active Substance: FOLIC ACID
  258. FOLIC ACID [Concomitant]
     Active Substance: FOLIC ACID
     Route: 048
  259. FOLIC ACID [Concomitant]
     Active Substance: FOLIC ACID
     Route: 048
  260. FOLIC ACID [Concomitant]
     Active Substance: FOLIC ACID
  261. FOLIC ACID [Concomitant]
     Active Substance: FOLIC ACID
  262. FOLIC ACID [Concomitant]
     Active Substance: FOLIC ACID
     Route: 048
  263. FOLIC ACID [Concomitant]
     Active Substance: FOLIC ACID
  264. FOLIC ACID [Concomitant]
     Active Substance: FOLIC ACID
     Route: 048
  265. FOLIC ACID [Concomitant]
     Active Substance: FOLIC ACID
     Route: 048
  266. FOLIC ACID [Concomitant]
     Active Substance: FOLIC ACID
     Route: 058
  267. FOLIC ACID [Concomitant]
     Active Substance: FOLIC ACID
     Route: 048
  268. FOLIC ACID [Concomitant]
     Active Substance: FOLIC ACID
     Route: 048
  269. FOLIC ACID [Concomitant]
     Active Substance: FOLIC ACID
  270. FOLIC ACID [Concomitant]
     Active Substance: FOLIC ACID
     Route: 058
  271. FOLIC ACID [Concomitant]
     Active Substance: FOLIC ACID
  272. FOLIC ACID [Concomitant]
     Active Substance: FOLIC ACID
     Route: 048
  273. ENBREL [Concomitant]
     Active Substance: ETANERCEPT
     Indication: Rheumatoid arthritis
     Route: 058
  274. ENBREL [Concomitant]
     Active Substance: ETANERCEPT
     Indication: Psoriatic arthropathy
     Route: 058
  275. ENBREL [Concomitant]
     Active Substance: ETANERCEPT
     Route: 058
  276. DICLOFENAC SODIUM [Concomitant]
     Active Substance: DICLOFENAC SODIUM
     Indication: Product used for unknown indication
  277. DICLOFENAC SODIUM [Concomitant]
     Active Substance: DICLOFENAC SODIUM
  278. DICLOFENAC SODIUM [Concomitant]
     Active Substance: DICLOFENAC SODIUM
     Route: 047
  279. DICLOFENAC SODIUM [Concomitant]
     Active Substance: DICLOFENAC SODIUM
  280. DICLOFENAC SODIUM [Concomitant]
     Active Substance: DICLOFENAC SODIUM
     Route: 058
  281. DICLOFENAC SODIUM [Concomitant]
     Active Substance: DICLOFENAC SODIUM
     Route: 048
  282. DICLOFENAC SODIUM [Concomitant]
     Active Substance: DICLOFENAC SODIUM
  283. DICLOFENAC [Concomitant]
     Active Substance: DICLOFENAC
     Indication: Product used for unknown indication
  284. DICLOFENAC [Concomitant]
     Active Substance: DICLOFENAC
     Route: 047
  285. DICLOFENAC [Concomitant]
     Active Substance: DICLOFENAC
     Route: 047
  286. DESOXIMETASONE [Concomitant]
     Active Substance: DESOXIMETASONE
     Indication: Product used for unknown indication
     Route: 048
  287. DESOXIMETASONE [Concomitant]
     Active Substance: DESOXIMETASONE
     Route: 048
  288. DESOXIMETASONE [Concomitant]
     Active Substance: DESOXIMETASONE
     Route: 048
  289. DESOXIMETASONE [Concomitant]
     Active Substance: DESOXIMETASONE
     Route: 048
  290. DESOXIMETASONE [Concomitant]
     Active Substance: DESOXIMETASONE
     Route: 058
  291. DESOXIMETASONE [Concomitant]
     Active Substance: DESOXIMETASONE
     Route: 003
  292. DESOXIMETASONE [Concomitant]
     Active Substance: DESOXIMETASONE
     Route: 061
  293. DESOXIMETASONE [Concomitant]
     Active Substance: DESOXIMETASONE
     Route: 058
  294. DESOXIMETASONE [Concomitant]
     Active Substance: DESOXIMETASONE
     Route: 061
  295. DESOXIMETASONE [Concomitant]
     Active Substance: DESOXIMETASONE
     Route: 050
  296. DESOXIMETASONE [Concomitant]
     Active Substance: DESOXIMETASONE
     Route: 042
  297. DESOXIMETASONE [Concomitant]
     Active Substance: DESOXIMETASONE
     Route: 058
  298. DESOXIMETASONE [Concomitant]
     Active Substance: DESOXIMETASONE
  299. DESOXIMETASONE [Concomitant]
     Active Substance: DESOXIMETASONE
     Route: 061
  300. DESOXIMETASONE [Concomitant]
     Active Substance: DESOXIMETASONE
     Route: 048
  301. DESOXIMETASONE [Concomitant]
     Active Substance: DESOXIMETASONE
     Route: 003
  302. DESOXIMETASONE [Concomitant]
     Active Substance: DESOXIMETASONE
  303. DESOXIMETASONE [Concomitant]
     Active Substance: DESOXIMETASONE
     Route: 048
  304. CORTISONE ACETATE [Concomitant]
     Active Substance: CORTISONE ACETATE
     Indication: Rheumatoid arthritis
     Route: 061
  305. CORTISONE ACETATE [Concomitant]
     Active Substance: CORTISONE ACETATE
     Route: 048
  306. CORTISONE ACETATE [Concomitant]
     Active Substance: CORTISONE ACETATE
     Route: 061
  307. CORTISONE ACETATE [Concomitant]
     Active Substance: CORTISONE ACETATE
  308. CORTISONE ACETATE [Concomitant]
     Active Substance: CORTISONE ACETATE
     Route: 048
  309. CORTISONE ACETATE [Concomitant]
     Active Substance: CORTISONE ACETATE
     Route: 050
  310. CORTISONE ACETATE [Concomitant]
     Active Substance: CORTISONE ACETATE
     Route: 048
  311. CIMZIA [Concomitant]
     Active Substance: CERTOLIZUMAB PEGOL
     Indication: Rheumatoid arthritis
     Route: 058
  312. CIMZIA [Concomitant]
     Active Substance: CERTOLIZUMAB PEGOL
     Indication: Psoriasis
  313. CIMZIA [Concomitant]
     Active Substance: CERTOLIZUMAB PEGOL
     Indication: Psoriatic arthropathy
     Route: 058
  314. CIMZIA [Concomitant]
     Active Substance: CERTOLIZUMAB PEGOL
     Route: 058
  315. CIMZIA [Concomitant]
     Active Substance: CERTOLIZUMAB PEGOL
  316. CIMZIA [Concomitant]
     Active Substance: CERTOLIZUMAB PEGOL
     Route: 058
  317. CIMZIA [Concomitant]
     Active Substance: CERTOLIZUMAB PEGOL
     Route: 058
  318. CIMZIA [Concomitant]
     Active Substance: CERTOLIZUMAB PEGOL
     Route: 058
  319. CIMZIA [Concomitant]
     Active Substance: CERTOLIZUMAB PEGOL
     Route: 058
  320. CIMZIA [Concomitant]
     Active Substance: CERTOLIZUMAB PEGOL
     Route: 058
  321. CIMZIA [Concomitant]
     Active Substance: CERTOLIZUMAB PEGOL
  322. CIMZIA [Concomitant]
     Active Substance: CERTOLIZUMAB PEGOL
     Route: 058
  323. CIMZIA [Concomitant]
     Active Substance: CERTOLIZUMAB PEGOL
     Route: 042
  324. CIMZIA [Concomitant]
     Active Substance: CERTOLIZUMAB PEGOL
     Route: 005
  325. CHLORHEXIDINE GLUCONATE [Concomitant]
     Active Substance: CHLORHEXIDINE GLUCONATE
     Indication: Product used for unknown indication
     Route: 061
  326. CHLORHEXIDINE GLUCONATE [Concomitant]
     Active Substance: CHLORHEXIDINE GLUCONATE
     Route: 002
  327. CHLORHEXIDINE GLUCONATE [Concomitant]
     Active Substance: CHLORHEXIDINE GLUCONATE
  328. CETIRIZINE [Concomitant]
     Active Substance: CETIRIZINE HYDROCHLORIDE
     Indication: Rheumatoid arthritis
     Route: 048
  329. CETIRIZINE [Concomitant]
     Active Substance: CETIRIZINE HYDROCHLORIDE
     Dosage: 10 MILLIGRAM
     Route: 048
  330. CETIRIZINE [Concomitant]
     Active Substance: CETIRIZINE HYDROCHLORIDE
     Route: 048
  331. CETIRIZINE [Concomitant]
     Active Substance: CETIRIZINE HYDROCHLORIDE
     Route: 048
  332. ARAVA [Concomitant]
     Active Substance: LEFLUNOMIDE
     Indication: Rheumatoid arthritis
     Route: 048
  333. ARAVA [Concomitant]
     Active Substance: LEFLUNOMIDE
     Route: 048
  334. ARAVA [Concomitant]
     Active Substance: LEFLUNOMIDE
     Route: 005
  335. ARAVA [Concomitant]
     Active Substance: LEFLUNOMIDE
     Route: 019
  336. ARAVA [Concomitant]
     Active Substance: LEFLUNOMIDE
     Route: 048
  337. ARAVA [Concomitant]
     Active Substance: LEFLUNOMIDE
     Route: 048
  338. ARAVA [Concomitant]
     Active Substance: LEFLUNOMIDE
  339. ARAVA [Concomitant]
     Active Substance: LEFLUNOMIDE
  340. PREDNISONE [Concomitant]
     Active Substance: PREDNISONE
     Indication: Rheumatoid arthritis
  341. PREDNISONE [Concomitant]
     Active Substance: PREDNISONE
     Indication: Systemic lupus erythematosus
  342. PREDNISONE [Concomitant]
     Active Substance: PREDNISONE
     Indication: Synovitis
     Route: 048
  343. PREDNISONE [Concomitant]
     Active Substance: PREDNISONE
     Indication: Psoriatic arthropathy
     Route: 048
  344. PREDNISONE [Concomitant]
     Active Substance: PREDNISONE
     Indication: Pemphigus
  345. PREDNISONE [Concomitant]
     Active Substance: PREDNISONE
     Indication: Inflammation
  346. PREDNISONE [Concomitant]
     Active Substance: PREDNISONE
     Indication: Bursitis
  347. ALENDRONATE SODIUM [Concomitant]
     Active Substance: ALENDRONATE SODIUM
     Indication: Rheumatoid arthritis
  348. ACTEMRA [Concomitant]
     Active Substance: TOCILIZUMAB
     Indication: Rheumatoid arthritis
  349. ACTEMRA [Concomitant]
     Active Substance: TOCILIZUMAB
     Route: 042
  350. ACTEMRA [Concomitant]
     Active Substance: TOCILIZUMAB
     Route: 042
  351. ACTEMRA [Concomitant]
     Active Substance: TOCILIZUMAB
     Route: 042
  352. ACTEMRA [Concomitant]
     Active Substance: TOCILIZUMAB
     Route: 042
  353. ACTEMRA [Concomitant]
     Active Substance: TOCILIZUMAB
     Route: 042
  354. ACTEMRA [Concomitant]
     Active Substance: TOCILIZUMAB
     Route: 042
  355. ACTEMRA [Concomitant]
     Active Substance: TOCILIZUMAB
     Route: 058
  356. ACTEMRA [Concomitant]
     Active Substance: TOCILIZUMAB
  357. ACTEMRA [Concomitant]
     Active Substance: TOCILIZUMAB
     Route: 042
  358. ACTEMRA [Concomitant]
     Active Substance: TOCILIZUMAB
     Route: 042
  359. ACTEMRA [Concomitant]
     Active Substance: TOCILIZUMAB
     Route: 042
  360. ACTEMRA [Concomitant]
     Active Substance: TOCILIZUMAB
     Route: 042
  361. ACTEMRA [Concomitant]
     Active Substance: TOCILIZUMAB
     Route: 042
  362. ACTEMRA [Concomitant]
     Active Substance: TOCILIZUMAB
     Route: 042
  363. ACTEMRA [Concomitant]
     Active Substance: TOCILIZUMAB
     Route: 042
  364. ACTEMRA [Concomitant]
     Active Substance: TOCILIZUMAB
     Route: 042
  365. ACTEMRA [Concomitant]
     Active Substance: TOCILIZUMAB
     Route: 042
  366. ACTEMRA [Concomitant]
     Active Substance: TOCILIZUMAB
     Route: 042
  367. ACTEMRA [Concomitant]
     Active Substance: TOCILIZUMAB
     Route: 042
  368. ACTEMRA [Concomitant]
     Active Substance: TOCILIZUMAB
     Route: 042
  369. ACTEMRA [Concomitant]
     Active Substance: TOCILIZUMAB
     Route: 042
  370. ACTEMRA [Concomitant]
     Active Substance: TOCILIZUMAB
     Route: 042
  371. ACTEMRA [Concomitant]
     Active Substance: TOCILIZUMAB
     Route: 058
  372. ACTEMRA [Concomitant]
     Active Substance: TOCILIZUMAB
  373. ACTEMRA [Concomitant]
     Active Substance: TOCILIZUMAB
  374. ACTEMRA [Concomitant]
     Active Substance: TOCILIZUMAB
     Route: 042
  375. ACTEMRA [Concomitant]
     Active Substance: TOCILIZUMAB
     Route: 058
  376. ACTEMRA [Concomitant]
     Active Substance: TOCILIZUMAB
     Route: 058
  377. ACETAMINOPHEN [Concomitant]
     Active Substance: ACETAMINOPHEN
     Indication: Product used for unknown indication
  378. ACETAMINOPHEN [Concomitant]
     Active Substance: ACETAMINOPHEN
  379. ACETAMINOPHEN [Concomitant]
     Active Substance: ACETAMINOPHEN
  380. ASCORBIC ACID [Concomitant]
     Active Substance: ASCORBIC ACID
     Indication: Product used for unknown indication
  381. ACETAMINOPHEN\CAFFEINE\CODEINE PHOSPHATE [Concomitant]
     Active Substance: ACETAMINOPHEN\CAFFEINE\CODEINE PHOSPHATE
     Indication: Product used for unknown indication
  382. ATIVAN [Concomitant]
     Active Substance: LORAZEPAM
     Indication: Product used for unknown indication
  383. CAFFEINE [Concomitant]
     Active Substance: CAFFEINE
     Indication: Product used for unknown indication
  384. CODEINE [Concomitant]
     Active Substance: CODEINE
     Indication: Product used for unknown indication
  385. DESOGESTREL\ETHINYL ESTRADIOL [Concomitant]
     Active Substance: DESOGESTREL\ETHINYL ESTRADIOL
     Indication: Product used for unknown indication
  386. ERGOCALCIFEROL [Concomitant]
     Active Substance: ERGOCALCIFEROL
     Indication: Product used for unknown indication
  387. GLUCOSAMINE [Concomitant]
     Active Substance: GLUCOSAMINE
     Indication: Product used for unknown indication
  388. LANSOPRAZOLE [Concomitant]
     Active Substance: LANSOPRAZOLE
     Indication: Product used for unknown indication
  389. PANTOPRAZOLE SODIUM [Concomitant]
     Active Substance: PANTOPRAZOLE SODIUM
     Indication: Product used for unknown indication
  390. PANTOPRAZOLE [Concomitant]
     Active Substance: PANTOPRAZOLE
     Indication: Product used for unknown indication
  391. PANTOPRAZOLE [Concomitant]
     Active Substance: PANTOPRAZOLE
     Route: 016
  392. SULFASALAZINE [Concomitant]
     Active Substance: SULFASALAZINE
     Indication: Product used for unknown indication
     Route: 048
  393. SULFASALAZINE [Concomitant]
     Active Substance: SULFASALAZINE
     Route: 048
  394. SULFASALAZINE [Concomitant]
     Active Substance: SULFASALAZINE
     Route: 048
  395. SALMON OIL [DOCOSAHEXAENOIC ACID;EICOSAPENTAENOIC ACID] [Concomitant]
     Indication: Product used for unknown indication
  396. TYLENOL [Concomitant]
     Active Substance: ACETAMINOPHEN
     Indication: Product used for unknown indication
  397. TYLENOL WITH CODEINE [Concomitant]
     Active Substance: ACETAMINOPHEN\CODEINE PHOSPHATE
     Indication: Product used for unknown indication
  398. IBUPROFEN [Concomitant]
     Active Substance: IBUPROFEN
     Indication: Product used for unknown indication
  399. ACETAMINOPHEN\CAFFEINE\CODEINE [Concomitant]
     Active Substance: ACETAMINOPHEN\CAFFEINE\CODEINE
     Indication: Product used for unknown indication
  400. ACETAMINOPHEN AND CODEINE [Concomitant]
     Active Substance: ACETAMINOPHEN\CODEINE PHOSPHATE
     Indication: Product used for unknown indication
  401. ADALIMUMAB [Concomitant]
     Active Substance: ADALIMUMAB
     Indication: Rheumatoid arthritis
     Route: 058
  402. ADALIMUMAB [Concomitant]
     Active Substance: ADALIMUMAB
     Indication: Psoriatic arthropathy
     Route: 048
  403. ADALIMUMAB [Concomitant]
     Active Substance: ADALIMUMAB
     Route: 042
  404. ADALIMUMAB [Concomitant]
     Active Substance: ADALIMUMAB
  405. ADALIMUMAB [Concomitant]
     Active Substance: ADALIMUMAB
     Route: 048
  406. ADALIMUMAB [Concomitant]
     Active Substance: ADALIMUMAB
  407. ADALIMUMAB [Concomitant]
     Active Substance: ADALIMUMAB
     Route: 058
  408. ADALIMUMAB [Concomitant]
     Active Substance: ADALIMUMAB
     Route: 058
  409. ALENDRONATE SODIUM [Concomitant]
     Active Substance: ALENDRONATE SODIUM
     Indication: Product used for unknown indication
  410. CETIRIZINE HYDROCHLORIDE [Concomitant]
     Active Substance: CETIRIZINE HYDROCHLORIDE
     Indication: Rheumatoid arthritis
  411. CETIRIZINE HYDROCHLORIDE [Concomitant]
     Active Substance: CETIRIZINE HYDROCHLORIDE
  412. CETIRIZINE HYDROCHLORIDE [Concomitant]
     Active Substance: CETIRIZINE HYDROCHLORIDE
  413. CETIRIZINE HYDROCHLORIDE [Concomitant]
     Active Substance: CETIRIZINE HYDROCHLORIDE
     Route: 048
  414. CETIRIZINE HYDROCHLORIDE [Concomitant]
     Active Substance: CETIRIZINE HYDROCHLORIDE
  415. CETIRIZINE HYDROCHLORIDE [Concomitant]
     Active Substance: CETIRIZINE HYDROCHLORIDE
  416. CETIRIZINE HYDROCHLORIDE [Concomitant]
     Active Substance: CETIRIZINE HYDROCHLORIDE
  417. CETIRIZINE HYDROCHLORIDE [Concomitant]
     Active Substance: CETIRIZINE HYDROCHLORIDE
  418. CETIRIZINE HYDROCHLORIDE [Concomitant]
     Active Substance: CETIRIZINE HYDROCHLORIDE
  419. CETIRIZINE HYDROCHLORIDE [Concomitant]
     Active Substance: CETIRIZINE HYDROCHLORIDE
  420. CETIRIZINE HYDROCHLORIDE [Concomitant]
     Active Substance: CETIRIZINE HYDROCHLORIDE
     Route: 048
  421. CETIRIZINE HYDROCHLORIDE [Concomitant]
     Active Substance: CETIRIZINE HYDROCHLORIDE
     Route: 048
  422. CETIRIZINE HYDROCHLORIDE [Concomitant]
     Active Substance: CETIRIZINE HYDROCHLORIDE
     Route: 048
  423. CETIRIZINE HYDROCHLORIDE [Concomitant]
     Active Substance: CETIRIZINE HYDROCHLORIDE
     Route: 048
  424. CETIRIZINE HYDROCHLORIDE [Concomitant]
     Active Substance: CETIRIZINE HYDROCHLORIDE
     Route: 048
  425. CETIRIZINE HYDROCHLORIDE [Concomitant]
     Active Substance: CETIRIZINE HYDROCHLORIDE
  426. CETIRIZINE HYDROCHLORIDE [Concomitant]
     Active Substance: CETIRIZINE HYDROCHLORIDE
     Route: 048
  427. CETIRIZINE HYDROCHLORIDE [Concomitant]
     Active Substance: CETIRIZINE HYDROCHLORIDE
  428. CETIRIZINE HYDROCHLORIDE [Concomitant]
     Active Substance: CETIRIZINE HYDROCHLORIDE
  429. CETIRIZINE HYDROCHLORIDE [Concomitant]
     Active Substance: CETIRIZINE HYDROCHLORIDE
  430. CETIRIZINE HYDROCHLORIDE [Concomitant]
     Active Substance: CETIRIZINE HYDROCHLORIDE
  431. CETIRIZINE HYDROCHLORIDE [Concomitant]
     Active Substance: CETIRIZINE HYDROCHLORIDE
  432. ERELZI [Concomitant]
     Active Substance: ETANERCEPT-SZZS
     Indication: Rheumatoid arthritis
     Route: 058
  433. ERELZI [Concomitant]
     Active Substance: ETANERCEPT-SZZS
  434. ERELZI [Concomitant]
     Active Substance: ETANERCEPT-SZZS
     Route: 058
  435. PANTOPRAZOLE SODIUM [Concomitant]
     Active Substance: PANTOPRAZOLE SODIUM
     Indication: Product used for unknown indication
  436. CETIRIZINE HYDROCHLORIDE [Concomitant]
     Active Substance: CETIRIZINE HYDROCHLORIDE
     Indication: Rheumatoid arthritis
  437. CETIRIZINE HYDROCHLORIDE [Concomitant]
     Active Substance: CETIRIZINE HYDROCHLORIDE
     Indication: Urticaria
  438. CETIRIZINE HYDROCHLORIDE [Concomitant]
     Active Substance: CETIRIZINE HYDROCHLORIDE
  439. CETIRIZINE HYDROCHLORIDE [Concomitant]
     Active Substance: CETIRIZINE HYDROCHLORIDE
     Route: 048
  440. CETIRIZINE HYDROCHLORIDE [Concomitant]
     Active Substance: CETIRIZINE HYDROCHLORIDE
     Route: 016
  441. TOCILIZUMAB [Concomitant]
     Active Substance: TOCILIZUMAB
     Indication: Product used for unknown indication
  442. USTEKINUMAB [Concomitant]
     Active Substance: USTEKINUMAB
     Indication: Product used for unknown indication
     Route: 058
  443. ALENDRONATE SODIUM\CHOLECALCIFEROL [Concomitant]
     Active Substance: ALENDRONATE SODIUM\CHOLECALCIFEROL
     Indication: Product used for unknown indication
  444. VITAMIN C [Concomitant]
     Active Substance: ASCORBIC ACID
     Indication: Product used for unknown indication
  445. VITAMIN C [Concomitant]
     Active Substance: ASCORBIC ACID
     Route: 016
  446. VITAMIN C [Concomitant]
     Active Substance: ASCORBIC ACID
     Route: 016
  447. VITAMIN C [Concomitant]
     Active Substance: ASCORBIC ACID
  448. DICLOFENAC SODIUM [Concomitant]
     Active Substance: DICLOFENAC SODIUM
     Indication: Product used for unknown indication
  449. DICLOFENAC SODIUM [Concomitant]
     Active Substance: DICLOFENAC SODIUM
  450. DICLOFENAC SODIUM [Concomitant]
     Active Substance: DICLOFENAC SODIUM
     Route: 047
  451. DICLOFENAC SODIUM [Concomitant]
     Active Substance: DICLOFENAC SODIUM
     Route: 048
  452. APREPITANT [Concomitant]
     Active Substance: APREPITANT
     Indication: Product used for unknown indication
     Route: 048
  453. APREPITANT [Concomitant]
     Active Substance: APREPITANT
  454. APREPITANT [Concomitant]
     Active Substance: APREPITANT
  455. APREPITANT [Concomitant]
     Active Substance: APREPITANT
  456. APREPITANT [Concomitant]
     Active Substance: APREPITANT
  457. APREPITANT [Concomitant]
     Active Substance: APREPITANT
  458. APREPITANT [Concomitant]
     Active Substance: APREPITANT
     Route: 042
  459. APREPITANT [Concomitant]
     Active Substance: APREPITANT
  460. APREPITANT [Concomitant]
     Active Substance: APREPITANT
     Route: 042
  461. LORAZEPAM [Concomitant]
     Active Substance: LORAZEPAM
     Indication: Product used for unknown indication
  462. PSEUDOEPHEDRINE [Concomitant]
     Active Substance: PSEUDOEPHEDRINE
     Indication: Product used for unknown indication
  463. TRIMIPRAMINE [Concomitant]
     Active Substance: TRIMIPRAMINE
     Indication: Product used for unknown indication
  464. ALENDRONIC ACID [Concomitant]
     Active Substance: ALENDRONIC ACID
     Indication: Rheumatoid arthritis
     Route: 048
  465. ALENDRONIC ACID [Concomitant]
     Active Substance: ALENDRONIC ACID
     Route: 048
  466. ALENDRONIC ACID [Concomitant]
     Active Substance: ALENDRONIC ACID
     Route: 048
  467. ALENDRONIC ACID [Concomitant]
     Active Substance: ALENDRONIC ACID
  468. ALENDRONIC ACID [Concomitant]
     Active Substance: ALENDRONIC ACID
     Route: 016
  469. ALENDRONIC ACID [Concomitant]
     Active Substance: ALENDRONIC ACID
     Route: 016
  470. ALENDRONIC ACID [Concomitant]
     Active Substance: ALENDRONIC ACID
  471. ALENDRONIC ACID [Concomitant]
     Active Substance: ALENDRONIC ACID
     Route: 048
  472. CALCIUM CARBONATE [Concomitant]
     Active Substance: CALCIUM CARBONATE
     Indication: Product used for unknown indication
  473. CELEBREX [Concomitant]
     Active Substance: CELECOXIB
     Indication: Product used for unknown indication
     Route: 048
  474. CELEBREX [Concomitant]
     Active Substance: CELECOXIB
     Route: 048
  475. CELECOXIB [Concomitant]
     Active Substance: CELECOXIB
     Indication: Product used for unknown indication
  476. CELECOXIB [Concomitant]
     Active Substance: CELECOXIB
  477. CELECOXIB [Concomitant]
     Active Substance: CELECOXIB
  478. CHLORAPREP [Concomitant]
     Active Substance: CHLORHEXIDINE GLUCONATE\ISOPROPYL ALCOHOL
     Indication: Product used for unknown indication
     Route: 061
  479. CHLORAPREP [Concomitant]
     Active Substance: CHLORHEXIDINE GLUCONATE\ISOPROPYL ALCOHOL
     Route: 048
  480. CHLORAPREP [Concomitant]
     Active Substance: CHLORHEXIDINE GLUCONATE\ISOPROPYL ALCOHOL
     Route: 061
  481. CHLORHEXIDINE GLUCONATE\ISOPROPYL ALCOHOL [Concomitant]
     Active Substance: CHLORHEXIDINE GLUCONATE\ISOPROPYL ALCOHOL
     Indication: Product used for unknown indication
     Route: 061
  482. CHLORHEXIDINE GLUCONATE\ISOPROPYL ALCOHOL [Concomitant]
     Active Substance: CHLORHEXIDINE GLUCONATE\ISOPROPYL ALCOHOL
     Route: 002
  483. CHLORHEXIDINE GLUCONATE\ISOPROPYL ALCOHOL [Concomitant]
     Active Substance: CHLORHEXIDINE GLUCONATE\ISOPROPYL ALCOHOL
     Route: 048
  484. CHOLECALCIFEROL [Concomitant]
     Active Substance: CHOLECALCIFEROL
     Indication: Product used for unknown indication
  485. CHOLECALCIFEROL [Concomitant]
     Active Substance: CHOLECALCIFEROL
     Route: 016
  486. CORTISONE [Concomitant]
     Active Substance: CORTISONE
     Indication: Rheumatoid arthritis
     Route: 061
  487. CORTISONE [Concomitant]
     Active Substance: CORTISONE
     Route: 058
  488. CORTISONE [Concomitant]
     Active Substance: CORTISONE
     Route: 003
  489. CORTISONE [Concomitant]
     Active Substance: CORTISONE
     Route: 048
  490. COSENTYX [Concomitant]
     Active Substance: SECUKINUMAB
     Indication: Rheumatoid arthritis
     Route: 005
  491. COSENTYX [Concomitant]
     Active Substance: SECUKINUMAB
     Indication: Psoriatic arthropathy
  492. DOXYCYCLINE [Concomitant]
     Active Substance: DOXYCYCLINE
     Indication: Product used for unknown indication
  493. LYRICA [Concomitant]
     Active Substance: PREGABALIN
     Indication: Product used for unknown indication
  494. MYCOPHENOLATE MOFETIL [Concomitant]
     Active Substance: MYCOPHENOLATE MOFETIL
     Indication: Product used for unknown indication
  495. NAPROXEN [Concomitant]
     Active Substance: NAPROXEN
     Indication: Rheumatoid arthritis
  496. NEOMYCIN [Concomitant]
     Active Substance: NEOMYCIN
     Indication: Product used for unknown indication
  497. OTEZLA [Concomitant]
     Active Substance: APREMILAST
     Indication: Product used for unknown indication
     Route: 048
  498. OTEZLA [Concomitant]
     Active Substance: APREMILAST
  499. OTEZLA [Concomitant]
     Active Substance: APREMILAST
     Route: 042
  500. OTEZLA [Concomitant]
     Active Substance: APREMILAST
     Route: 048
  501. HYDROCORTISONE [Concomitant]
     Active Substance: HYDROCORTISONE
     Indication: Rheumatoid arthritis
  502. HYDROCORTISONE [Concomitant]
     Active Substance: HYDROCORTISONE
     Route: 058
  503. HYDROCORTISONE [Concomitant]
     Active Substance: HYDROCORTISONE
     Route: 003
  504. HYDROCORTISONE [Concomitant]
     Active Substance: HYDROCORTISONE
  505. HYDROCORTISONE [Concomitant]
     Active Substance: HYDROCORTISONE
     Route: 061
  506. HYDROCORTISONE [Concomitant]
     Active Substance: HYDROCORTISONE
     Route: 058
  507. HYDROCORTISONE [Concomitant]
     Active Substance: HYDROCORTISONE
     Route: 048
  508. PREGABALIN [Concomitant]
     Active Substance: PREGABALIN
     Indication: Product used for unknown indication
  509. PSEUDOEPHEDRINE HYDROCHLORIDE [Concomitant]
     Active Substance: PSEUDOEPHEDRINE HYDROCHLORIDE
     Indication: Rheumatoid arthritis
  510. PSEUDOEPHEDRINE HYDROCHLORIDE [Concomitant]
     Active Substance: PSEUDOEPHEDRINE HYDROCHLORIDE
  511. SULFAMETHOXAZOLE AND TRIMETHOPRIM [Concomitant]
     Active Substance: SULFAMETHOXAZOLE\TRIMETHOPRIM
     Indication: Product used for unknown indication
  512. DICLOFENAC [Concomitant]
     Active Substance: DICLOFENAC
     Indication: Product used for unknown indication
  513. PREDNISONE [Concomitant]
     Active Substance: PREDNISONE
     Indication: Rheumatoid arthritis
     Route: 048
  514. PREDNISONE [Concomitant]
     Active Substance: PREDNISONE
  515. ALENDRONATE SODIUM\CHOLECALCIFEROL [Concomitant]
     Active Substance: ALENDRONATE SODIUM\CHOLECALCIFEROL
     Indication: Rheumatoid arthritis
     Route: 048
  516. ALENDRONATE SODIUM\CHOLECALCIFEROL [Concomitant]
     Active Substance: ALENDRONATE SODIUM\CHOLECALCIFEROL
     Route: 048
  517. APREMILAST [Concomitant]
     Active Substance: APREMILAST
     Indication: Product used for unknown indication
  518. APREMILAST [Concomitant]
     Active Substance: APREMILAST
     Route: 048
  519. ASACOL [Concomitant]
     Active Substance: MESALAMINE
  520. BORAGE OIL [Concomitant]
     Active Substance: BORAGE OIL
     Indication: Product used for unknown indication
  521. CALCIUM [Concomitant]
     Active Substance: CALCIUM
     Indication: Product used for unknown indication
  522. CALCIUM GLUBIONATE [Concomitant]
     Active Substance: CALCIUM GLUBIONATE
     Indication: Product used for unknown indication
     Route: 016
  523. CETRIMIDE [Concomitant]
     Active Substance: CETRIMIDE
     Indication: Product used for unknown indication
  524. CORTISONE (HYDROCORTISONE) [Concomitant]
     Active Substance: HYDROCORTISONE
     Indication: Rheumatoid arthritis
     Route: 061
  525. CORTISONE (HYDROCORTISONE) [Concomitant]
     Active Substance: HYDROCORTISONE
  526. CORTISONE (HYDROCORTISONE) [Concomitant]
     Active Substance: HYDROCORTISONE
     Route: 058
  527. CORTISONE (HYDROCORTISONE) [Concomitant]
     Active Substance: HYDROCORTISONE
     Route: 048
  528. CORTISONE (HYDROCORTISONE) [Concomitant]
     Active Substance: HYDROCORTISONE
     Route: 003
  529. CORTISONE (HYDROCORTISONE) [Concomitant]
     Active Substance: HYDROCORTISONE
     Route: 058
  530. CORTISONE (HYDROCORTISONE) [Concomitant]
     Active Substance: HYDROCORTISONE
     Route: 050
  531. CORTISONE (HYDROCORTISONE) [Concomitant]
     Active Substance: HYDROCORTISONE
  532. CORTISONE (HYDROCORTISONE) [Concomitant]
     Active Substance: HYDROCORTISONE
  533. CORTISONE (HYDROCORTISONE) [Concomitant]
     Active Substance: HYDROCORTISONE
  534. CORTISONE (HYDROCORTISONE) [Concomitant]
     Active Substance: HYDROCORTISONE
     Route: 061
  535. CORTISONE (HYDROCORTISONE) [Concomitant]
     Active Substance: HYDROCORTISONE
     Route: 048
  536. DICLOFENAC DIETHYLAMINE [Concomitant]
     Active Substance: DICLOFENAC DIETHYLAMINE
     Indication: Product used for unknown indication
  537. DILTIAZEM [Concomitant]
     Active Substance: DILTIAZEM
     Indication: Product used for unknown indication
  538. DILTIAZEM HYDROCHLORIDE [Concomitant]
     Active Substance: DILTIAZEM HYDROCHLORIDE
     Indication: Product used for unknown indication
     Route: 042
  539. DILTIAZEM HYDROCHLORIDE [Concomitant]
     Active Substance: DILTIAZEM HYDROCHLORIDE
  540. ENTYVIO [Concomitant]
     Active Substance: VEDOLIZUMAB
     Indication: Product used for unknown indication
  541. FLUMETHASONE PIVALATE [Concomitant]
     Active Substance: FLUMETHASONE PIVALATE
     Indication: Rheumatoid arthritis
     Route: 003
  542. FLUMETHASONE PIVALATE [Concomitant]
     Active Substance: FLUMETHASONE PIVALATE
     Route: 058
  543. FLUMETHASONE PIVALATE [Concomitant]
     Active Substance: FLUMETHASONE PIVALATE
     Route: 058
  544. FLUMETHASONE PIVALATE [Concomitant]
     Active Substance: FLUMETHASONE PIVALATE
  545. FLUMETHASONE PIVALATE [Concomitant]
     Active Substance: FLUMETHASONE PIVALATE
  546. HYDROCORTISONE BUTYRATE [Concomitant]
     Active Substance: HYDROCORTISONE BUTYRATE
     Indication: Rheumatoid arthritis
  547. HYDROCORTISONE BUTYRATE [Concomitant]
     Active Substance: HYDROCORTISONE BUTYRATE
     Route: 050
  548. HYDROCORTISONE BUTYRATE [Concomitant]
     Active Substance: HYDROCORTISONE BUTYRATE
  549. HYDROCORTISONE BUTYRATE [Concomitant]
     Active Substance: HYDROCORTISONE BUTYRATE
     Route: 058
  550. HYDROCORTISONE BUTYRATE [Concomitant]
     Active Substance: HYDROCORTISONE BUTYRATE
  551. HYDROCORTISONE BUTYRATE [Concomitant]
     Active Substance: HYDROCORTISONE BUTYRATE
     Route: 048
  552. INFLIXIMAB [Concomitant]
     Active Substance: INFLIXIMAB
     Indication: Rheumatoid arthritis
     Route: 042
  553. INFLIXIMAB [Concomitant]
     Active Substance: INFLIXIMAB
     Indication: Psoriatic arthropathy
  554. INFLIXIMAB [Concomitant]
     Active Substance: INFLIXIMAB
  555. INFLIXIMAB [Concomitant]
     Active Substance: INFLIXIMAB
     Route: 042
  556. INFLIXIMAB [Concomitant]
     Active Substance: INFLIXIMAB
     Route: 042
  557. INFLIXIMAB [Concomitant]
     Active Substance: INFLIXIMAB
  558. ISOPROPYL ALCOHOL [Concomitant]
     Active Substance: ISOPROPYL ALCOHOL
     Indication: Product used for unknown indication
     Route: 061
  559. ISOPROPYL ALCOHOL [Concomitant]
     Active Substance: ISOPROPYL ALCOHOL
     Route: 061
  560. MOXIFLOXACIN [Concomitant]
     Active Substance: MOXIFLOXACIN
     Indication: Product used for unknown indication
     Route: 058
  561. NAPROXEN SODIUM [Concomitant]
     Active Substance: NAPROXEN SODIUM
     Indication: Rheumatoid arthritis
  562. NAPROXEN SODIUM [Concomitant]
     Active Substance: NAPROXEN SODIUM
  563. PREDNISOLONE [Concomitant]
     Active Substance: PREDNISOLONE
     Indication: Product used for unknown indication
  564. SULFATRIM [Concomitant]
     Active Substance: SULFAMETHOXAZOLE\TRIMETHOPRIM
     Indication: Product used for unknown indication
     Route: 067
  565. SULFATRIM [Concomitant]
     Active Substance: SULFAMETHOXAZOLE\TRIMETHOPRIM
  566. VITAMIN D3 [Concomitant]
     Active Substance: CHOLECALCIFEROL
     Indication: Rheumatoid arthritis
  567. VITAMIN D3 [Concomitant]
     Active Substance: CHOLECALCIFEROL
  568. MARVELON [Concomitant]
     Active Substance: DESOGESTREL\ETHINYL ESTRADIOL
     Indication: Product used for unknown indication
  569. ZOPICLONE [Concomitant]
     Active Substance: ZOPICLONE
     Indication: Product used for unknown indication
  570. EMEND [Concomitant]
     Active Substance: APREPITANT
     Indication: Product used for unknown indication
     Route: 048
  571. GRAMICIDIN\NEOMYCIN SULFATE\NYSTATIN\TRIAMCINOLONE ACETONIDE [Concomitant]
     Active Substance: GRAMICIDIN\NEOMYCIN SULFATE\NYSTATIN\TRIAMCINOLONE ACETONIDE
     Indication: Product used for unknown indication
  572. HYDROCORTISONE SODIUM SUCCINATE [Concomitant]
     Active Substance: HYDROCORTISONE SODIUM SUCCINATE
     Indication: Rheumatoid arthritis
     Route: 048
  573. VITAMIN B12 [Concomitant]
     Active Substance: CYANOCOBALAMIN
     Indication: Product used for unknown indication
  574. PANTOPRAZOLE SODIUM ANHYDROUS [Concomitant]
     Active Substance: PANTOPRAZOLE SODIUM ANHYDROUS
     Indication: Product used for unknown indication
  575. CAFFEINE CITRATE [Concomitant]
     Active Substance: CAFFEINE CITRATE
     Indication: Product used for unknown indication
  576. LEVOTHYROXINE SODIUM [Concomitant]
     Active Substance: LEVOTHYROXINE SODIUM
     Indication: Product used for unknown indication
  577. LISINOPRIL [Concomitant]
     Active Substance: LISINOPRIL
     Indication: Product used for unknown indication
  578. MAGNESIUM [Concomitant]
     Active Substance: MAGNESIUM
     Indication: Product used for unknown indication
  579. MELOXICAM [Concomitant]
     Active Substance: MELOXICAM
     Indication: Product used for unknown indication
  580. QUETIAPINE [Concomitant]
     Active Substance: QUETIAPINE
     Indication: Product used for unknown indication
  581. QUETIAPINE FUMARATE [Concomitant]
     Active Substance: QUETIAPINE FUMARATE
     Indication: Product used for unknown indication
  582. RAMIPRIL [Concomitant]
     Active Substance: RAMIPRIL
     Indication: Product used for unknown indication
  583. RISEDRONATE SODIUM [Concomitant]
     Active Substance: RISEDRONATE SODIUM
     Indication: Product used for unknown indication
  584. TOFACITINIB [Concomitant]
     Active Substance: TOFACITINIB
     Indication: Product used for unknown indication
  585. TOFACITINIB CITRATE [Concomitant]
     Active Substance: TOFACITINIB CITRATE
     Indication: Product used for unknown indication
  586. DIETARY SUPPLEMENT [Concomitant]
     Active Substance: DIETARY SUPPLEMENT
     Indication: Product used for unknown indication
     Route: 016
  587. ACTIFED (PSEUDOEPHEDRINE HYDROCHLORIDE\TRIPROLIDINE HYDROCHLORIDE) [Concomitant]
     Active Substance: PSEUDOEPHEDRINE HYDROCHLORIDE\TRIPROLIDINE HYDROCHLORIDE
     Indication: Product used for unknown indication
  588. ACETAMINOPHEN [Concomitant]
     Active Substance: ACETAMINOPHEN
     Indication: Rheumatoid arthritis
     Route: 048
  589. ACETAMINOPHEN [Concomitant]
     Active Substance: ACETAMINOPHEN
  590. AZULFIDINE [Concomitant]
     Active Substance: SULFASALAZINE
     Indication: Product used for unknown indication
  591. CALCIUM GLUCONATE [Concomitant]
     Active Substance: CALCIUM GLUCONATE
     Indication: Product used for unknown indication
  592. DIPHENHYDRAMINE HYDROCHLORIDE [Concomitant]
     Active Substance: DIPHENHYDRAMINE HYDROCHLORIDE
     Indication: Product used for unknown indication
  593. INDOMETHACIN [Concomitant]
     Active Substance: INDOMETHACIN
     Indication: Product used for unknown indication
  594. PARA-AMINOSALICYLIC ACID [Concomitant]
     Active Substance: AMINOSALICYLIC ACID
     Indication: Product used for unknown indication
  595. OXYCODONE AND ACETAMINOPHEN [Concomitant]
     Active Substance: ACETAMINOPHEN\OXYCODONE HYDROCHLORIDE
     Indication: Product used for unknown indication
  596. OXYCODONE AND ACETAMINOPHEN [Concomitant]
     Active Substance: ACETAMINOPHEN\OXYCODONE HYDROCHLORIDE
  597. OXYCODONE AND ACETAMINOPHEN [Concomitant]
     Active Substance: ACETAMINOPHEN\OXYCODONE HYDROCHLORIDE
  598. CLIOQUINOL [Concomitant]
     Active Substance: CLIOQUINOL
     Indication: Product used for unknown indication
  599. SECUKINUMAB [Concomitant]
     Active Substance: SECUKINUMAB
     Indication: Product used for unknown indication

REACTIONS (135)
  - Adverse event [Unknown]
  - Pericarditis [Unknown]
  - Pemphigus [Unknown]
  - Duodenal ulcer perforation [Unknown]
  - Deep vein thrombosis postoperative [Unknown]
  - Systemic lupus erythematosus [Unknown]
  - Autoimmune disorder [Unknown]
  - Abdominal discomfort [Unknown]
  - Rheumatoid arthritis [Unknown]
  - Alopecia [Unknown]
  - Arthropathy [Unknown]
  - Asthma [Unknown]
  - Blister [Unknown]
  - Chest pain [Unknown]
  - Condition aggravated [Unknown]
  - Confusional state [Unknown]
  - Contusion [Unknown]
  - Discomfort [Unknown]
  - Drug hypersensitivity [Unknown]
  - Drug ineffective [Unknown]
  - Drug intolerance [Unknown]
  - Dyspnoea [Unknown]
  - Fatigue [Unknown]
  - Folliculitis [Unknown]
  - Gait inability [Unknown]
  - Gastrointestinal disorder [Unknown]
  - Glossodynia [Unknown]
  - Hand deformity [Unknown]
  - Helicobacter infection [Unknown]
  - Hepatic enzyme increased [Unknown]
  - Impaired healing [Unknown]
  - Infection [Unknown]
  - Infusion related reaction [Unknown]
  - Irritable bowel syndrome [Unknown]
  - Lower limb fracture [Unknown]
  - Lower respiratory tract infection [Unknown]
  - Muscle injury [Unknown]
  - Musculoskeletal stiffness [Unknown]
  - Nasopharyngitis [Unknown]
  - Peripheral swelling [Unknown]
  - Pruritus [Unknown]
  - Pyrexia [Unknown]
  - Rash [Unknown]
  - Road traffic accident [Unknown]
  - Sinusitis [Unknown]
  - Sleep disorder due to general medical condition, insomnia type [Unknown]
  - Stomatitis [Unknown]
  - Swelling [Unknown]
  - Synovitis [Unknown]
  - Therapy non-responder [Unknown]
  - Treatment failure [Unknown]
  - Urticaria [Unknown]
  - Weight increased [Unknown]
  - Wound [Unknown]
  - Crohn^s disease [Unknown]
  - Drug-induced liver injury [Unknown]
  - Ear infection [Unknown]
  - Exostosis [Unknown]
  - Foot deformity [Unknown]
  - Hepatic cirrhosis [Unknown]
  - Hypercholesterolaemia [Unknown]
  - Joint dislocation [Unknown]
  - Laryngitis [Unknown]
  - Lupus-like syndrome [Unknown]
  - Off label use [Unknown]
  - Osteoporosis [Unknown]
  - Pneumonia [Unknown]
  - Pulmonary fibrosis [Unknown]
  - Red blood cell sedimentation rate increased [Unknown]
  - Retinitis [Unknown]
  - Tachycardia [Unknown]
  - Therapeutic product effect incomplete [Unknown]
  - Thrombocytopenia [Unknown]
  - Visual impairment [Unknown]
  - Hypertension [Unknown]
  - Anti-cyclic citrullinated peptide antibody positive [Unknown]
  - Decreased appetite [Unknown]
  - General physical health deterioration [Unknown]
  - Headache [Unknown]
  - Hypersensitivity [Unknown]
  - Hypoaesthesia [Unknown]
  - Ill-defined disorder [Unknown]
  - Inflammation [Unknown]
  - Injury [Unknown]
  - Liver injury [Unknown]
  - Pain [Unknown]
  - Sciatica [Unknown]
  - Dry mouth [Unknown]
  - Facet joint syndrome [Unknown]
  - Fibromyalgia [Unknown]
  - Joint range of motion decreased [Unknown]
  - Joint swelling [Unknown]
  - Lip dry [Unknown]
  - Liver disorder [Unknown]
  - Malaise [Unknown]
  - Mobility decreased [Unknown]
  - C-reactive protein abnormal [Unknown]
  - Insomnia [Unknown]
  - Psoriatic arthropathy [Unknown]
  - Rheumatic fever [Unknown]
  - Rheumatoid factor positive [Unknown]
  - Sleep disorder [Unknown]
  - Swollen joint count increased [Unknown]
  - Type 2 diabetes mellitus [Unknown]
  - Vomiting [Unknown]
  - Wheezing [Unknown]
  - Anxiety [Unknown]
  - Arthralgia [Unknown]
  - Asthenia [Unknown]
  - Blood cholesterol increased [Unknown]
  - Bursitis [Unknown]
  - Musculoskeletal pain [Unknown]
  - Night sweats [Unknown]
  - Obesity [Unknown]
  - Oedema [Unknown]
  - Oedema peripheral [Unknown]
  - Osteoarthritis [Unknown]
  - Pain in extremity [Unknown]
  - Paraesthesia [Unknown]
  - Peripheral venous disease [Unknown]
  - Muscle spasms [Unknown]
  - Medication error [Unknown]
  - Lung disorder [Unknown]
  - Depression [Unknown]
  - Acquired porphyria [Unknown]
  - Rectal haemorrhage [Unknown]
  - Nausea [Unknown]
  - Abdominal pain [Unknown]
  - Abdominal pain upper [Unknown]
  - Diarrhoea [Unknown]
  - Dizziness [Unknown]
  - Weight decreased [Unknown]
  - Wound infection [Unknown]
  - X-ray abnormal [Unknown]
  - Hospitalisation [Unknown]
